FAERS Safety Report 10192571 (Version 1)
Quarter: 2014Q2

REPORT INFORMATION
  Report Type: Spontaneous
  Country: US (occurrence: US)
  Receive Date: 20140523
  Receipt Date: 20140523
  Transmission Date: 20141212
  Serious: Yes (Hospitalization)
  Sender: FDA-Public Use
  Company Number: US-ELI_LILLY_AND_COMPANY-US201405004071

PATIENT
  Sex: Male

DRUGS (6)
  1. HUMALOG LISPRO [Suspect]
     Indication: TYPE 2 DIABETES MELLITUS
     Dosage: UNK UNK, TID
     Dates: start: 2002
  2. LANTUS [Concomitant]
  3. APIDRA [Concomitant]
  4. JANUVIA [Concomitant]
     Dosage: 50 MG, QD
  5. BENICAR [Concomitant]
  6. LITHIUM [Concomitant]
     Dosage: 600 MG, QD

REACTIONS (7)
  - Intervertebral disc protrusion [Unknown]
  - Road traffic accident [Unknown]
  - Disorientation [Not Recovered/Not Resolved]
  - Disorientation [Recovered/Resolved]
  - Blood glucose decreased [Recovered/Resolved]
  - Tremor [Recovered/Resolved]
  - Hyperhidrosis [Recovered/Resolved]
